FAERS Safety Report 12758021 (Version 10)
Quarter: 2017Q3

REPORT INFORMATION
  Report Type: Spontaneous
  Country: US (occurrence: US)
  Receive Date: 20160919
  Receipt Date: 20170928
  Transmission Date: 20171127
  Serious: Yes (Other)
  Sender: FDA-Public Use
  Company Number: US-PFIZER INC-2016431975

PATIENT
  Age: 64 Year
  Sex: Female

DRUGS (18)
  1. OXYCODONE [Concomitant]
     Active Substance: OXYCODONE
     Dosage: 30 MG, UNK
  2. FUROSEMIDE. [Concomitant]
     Active Substance: FUROSEMIDE
     Dosage: 40 MG, UNK
  3. IBRANCE [Suspect]
     Active Substance: PALBOCICLIB
     Indication: BREAST CANCER FEMALE
     Dosage: 100 MG, UNK
     Dates: start: 201608, end: 201704
  4. CIPRO [Concomitant]
     Active Substance: CIPROFLOXACIN HYDROCHLORIDE
     Dosage: 500 MG, UNK
  5. EX-LAX REGULAR STRENGTH STIMULANT LAXATIVE [Concomitant]
     Active Substance: SENNOSIDES
     Dosage: 15 MG, UNK
  6. LISINOPRIL. [Concomitant]
     Active Substance: LISINOPRIL
     Dosage: 10 MG, UNK
  7. VENLAFAXINE [Concomitant]
     Active Substance: VENLAFAXINE HYDROCHLORIDE
     Dosage: 150 MG, UNK
  8. CALCIUM [Concomitant]
     Active Substance: CALCIUM
     Dosage: UNK (1200)
  9. IBRANCE [Suspect]
     Active Substance: PALBOCICLIB
     Dosage: 75 MG, CYCLIC (TAKE ONE CAPSULE ONCE DAILY WITH FOOD FOR 21 DAYS, THEN 7 DAYS OFF)
     Route: 048
     Dates: start: 20160829
  10. ALPRAZOLAM. [Concomitant]
     Active Substance: ALPRAZOLAM
     Dosage: 1 MG, UNK
  11. CARVEDILOL. [Concomitant]
     Active Substance: CARVEDILOL
     Dosage: 3.125 MG, UNK
  12. HYDROCODONE/ACETAMINOPHEN [Concomitant]
     Active Substance: ACETAMINOPHEN\HYDROCODONE
     Dosage: UNK[HYDROCODONE-10 MG/ACETAMINOPHEN-325 MG]
  13. OMEPRAZOLE. [Concomitant]
     Active Substance: OMEPRAZOLE
     Dosage: 20 MG, UNK
  14. POTASSIUM CHLORIDE. [Concomitant]
     Active Substance: POTASSIUM CHLORIDE
     Dosage: 10 MEQ, UNK
  15. SUCRALFATE. [Concomitant]
     Active Substance: SUCRALFATE
     Dosage: 1 G, UNK
  16. VITAMIN D3 [Concomitant]
     Active Substance: CHOLECALCIFEROL
     Dosage: 5000 IU, UNK
  17. IBRANCE [Suspect]
     Active Substance: PALBOCICLIB
     Dosage: 75 MG, UNK
     Dates: start: 201704
  18. LETROZOLE. [Concomitant]
     Active Substance: LETROZOLE
     Dosage: UNK

REACTIONS (27)
  - White blood cell count decreased [Not Recovered/Not Resolved]
  - Abdominal pain [Unknown]
  - Back pain [Unknown]
  - Full blood count decreased [Unknown]
  - Vomiting [Not Recovered/Not Resolved]
  - Asthenia [Not Recovered/Not Resolved]
  - Red blood cell count decreased [Unknown]
  - Peripheral swelling [Unknown]
  - Gastric infection [Unknown]
  - Pneumonia [Unknown]
  - Abdominal pain upper [Unknown]
  - Insomnia [Unknown]
  - Pain in extremity [Unknown]
  - Urinary tract infection [Unknown]
  - Arthritis [Unknown]
  - Anxiety [Unknown]
  - Yellow skin [Recovering/Resolving]
  - Bone pain [Not Recovered/Not Resolved]
  - Nausea [Unknown]
  - Arthralgia [Unknown]
  - Hyperhidrosis [Not Recovered/Not Resolved]
  - Fatigue [Not Recovered/Not Resolved]
  - Pain [Unknown]
  - Diarrhoea [Unknown]
  - Stomatitis [Unknown]
  - Oropharyngeal pain [Unknown]
  - Decreased appetite [Unknown]
